FAERS Safety Report 8693275 (Version 2)
Quarter: 2012Q4

REPORT INFORMATION
  Report Type: 
  Country: DE (occurrence: DE)
  Receive Date: 20120730
  Receipt Date: 20120831
  Transmission Date: 20130627
  Serious: Yes (Other)
  Sender: FDA-Public Use
  Company Number: DE-B.I. PHARMACEUTICALS,INC./RIDGEFIELD-2012-DE-01729DE

PATIENT
  Age: 83 None
  Sex: Female
  Weight: 65 kg

DRUGS (7)
  1. PRADAXA [Suspect]
     Indication: ATRIAL FIBRILLATION
     Dosage: 220 mg
     Dates: start: 20120425, end: 20120726
  2. TORASEMID [Concomitant]
     Indication: OEDEMA
     Dosage: 10 NR
     Route: 048
     Dates: start: 20120425
  3. TORASEMID [Concomitant]
     Indication: BLOOD PRESSURE
  4. LORZAAR PLUS [Concomitant]
     Indication: BLOOD PRESSURE
     Dosage: 50/12.5
     Route: 048
     Dates: start: 201102
  5. DETRUSITOL [Concomitant]
     Indication: URINARY INCONTINENCE
     Dosage: 2 mg
     Route: 048
  6. EVISTA [Concomitant]
     Dosage: 1 anz
     Route: 048
  7. BISOPROLOL [Concomitant]
     Indication: BLOOD PRESSURE
     Dosage: 10 mg
     Route: 048
     Dates: start: 201102

REACTIONS (1)
  - Creatinine renal clearance decreased [Recovered/Resolved]
